FAERS Safety Report 9988663 (Version 1)
Quarter: 2014Q1

REPORT INFORMATION
  Report Type: Spontaneous
  Country: JP (occurrence: JP)
  Receive Date: 20140310
  Receipt Date: 20140310
  Transmission Date: 20141002
  Serious: Yes (Other)
  Sender: FDA-Public Use
  Company Number: JP-ROCHE-1359845

PATIENT
  Age: 73 Year
  Sex: Female
  Weight: 51 kg

DRUGS (4)
  1. ROCEPHIN [Suspect]
     Indication: PYELONEPHRITIS ACUTE
     Route: 042
     Dates: start: 20140126, end: 20140201
  2. PLAVIX [Concomitant]
     Indication: CEREBRAL INFARCTION
     Route: 048
     Dates: start: 20140128
  3. PARIET [Concomitant]
     Indication: ANAEMIA
     Route: 048
     Dates: start: 20140129, end: 20140202
  4. ASTAT (JAPAN) [Concomitant]
     Indication: FUNGAL PARONYCHIA
     Dosage: DOSAGE IS UNCERTAIN.
     Route: 003
     Dates: start: 20140129

REACTIONS (1)
  - Encephalopathy [Recovered/Resolved]
